FAERS Safety Report 7113039-2 (Version None)
Quarter: 2010Q4

REPORT INFORMATION
  Report Type: 
  Country: None (occurrence: None)
  Receive Date: 20101119
  Receipt Date: 20101109
  Transmission Date: 20110411
  Serious: Yes (Other)
  Sender: FDA-Public Use
  Company Number: JP-JNJFOC-20101100369

PATIENT
  Age: 77 Year
  Sex: Female

DRUGS (4)
  1. RISPERIDONE [Suspect]
     Indication: ILL-DEFINED DISORDER
     Route: 048
  2. FORIT [Concomitant]
     Route: 048
  3. SULPERAZON [Concomitant]
     Route: 065
  4. URSO 250 [Concomitant]
     Route: 065

REACTIONS (1)
  - CHOLECYSTITIS [None]
